FAERS Safety Report 8561110-0 (Version None)
Quarter: 2012Q3

REPORT INFORMATION
  Report Type: 
  Country: None (occurrence: None)
  Receive Date: 20120802
  Receipt Date: 20120727
  Transmission Date: 20120928
  Serious: No
  Sender: FDA-Public Use
  Company Number: US-BAYER-2012-076570

PATIENT
  Age: 66 Year
  Sex: Male
  Weight: 77.098 kg

DRUGS (1)
  1. ALEVE (CAPLET) [Suspect]
     Indication: ARTHRITIS
     Dosage: 1 DF, PRN
     Route: 048
     Dates: start: 20120101, end: 20120101

REACTIONS (1)
  - NO ADVERSE EVENT [None]
